FAERS Safety Report 19380418 (Version 1)
Quarter: 2021Q2

REPORT INFORMATION
  Report Type: Report from Study
  Country: US (occurrence: US)
  Receive Date: 20210607
  Receipt Date: 20210607
  Transmission Date: 20210717
  Serious: Yes (Death)
  Sender: FDA-Public Use
  Company Number: US-TAIHO ONCOLOGY  INC-EU-2021-01732

PATIENT
  Age: 50 Year
  Sex: Male
  Weight: 90.35 kg

DRUGS (8)
  1. GABAPENTIN. [Concomitant]
     Active Substance: GABAPENTIN
  2. MORPHINE ER [Concomitant]
     Active Substance: MORPHINE
  3. CENTRUM [Concomitant]
     Active Substance: VITAMINS
  4. XARELTO [Concomitant]
     Active Substance: RIVAROXABAN
  5. LONSURF [Suspect]
     Active Substance: TIPIRACIL HYDROCHLORIDE\TRIFLURIDINE
     Indication: HEPATIC CANCER
     Dosage: CYCLE UNKNOWN
     Route: 048
     Dates: start: 20210503
  6. LORAZEPAM. [Concomitant]
     Active Substance: LORAZEPAM
  7. OXYCODONE [Concomitant]
     Active Substance: OXYCODONE
  8. PROCHLORPERAZINE. [Concomitant]
     Active Substance: PROCHLORPERAZINE

REACTIONS (2)
  - Death [Fatal]
  - Off label use [Unknown]

NARRATIVE: CASE EVENT DATE: 20210529
